FAERS Safety Report 7010183-5 (Version None)
Quarter: 2010Q3

REPORT INFORMATION
  Report Type: 
  Country: None (occurrence: None)
  Receive Date: 20100923
  Receipt Date: 20100914
  Transmission Date: 20110219
  Serious: Yes (Other)
  Sender: FDA-Public Use
  Company Number: DE-ABBOTT-10P-062-0665867-00

PATIENT
  Sex: Male
  Weight: 48 kg

DRUGS (6)
  1. HUMIRA [Suspect]
     Indication: CROHN'S DISEASE
     Route: 058
     Dates: start: 20100709, end: 20100730
  2. AZATHIOPRINE [Concomitant]
     Indication: CROHN'S DISEASE
     Route: 048
     Dates: start: 20090901, end: 20100730
  3. AZATHIOPRINE [Concomitant]
     Dates: start: 20080601
  4. PREDNISOLONE [Concomitant]
     Indication: CROHN'S DISEASE
     Dosage: 20 MG OD
     Route: 048
     Dates: start: 20100701, end: 20100730
  5. PREDNISOLONE [Concomitant]
     Route: 048
     Dates: start: 20100401
  6. COTRIM [Concomitant]
     Indication: INFECTION PROPHYLAXIS
     Dates: start: 20100709

REACTIONS (3)
  - ANAL FISSURE [None]
  - CROHN'S DISEASE [None]
  - PERIRECTAL ABSCESS [None]
